FAERS Safety Report 14172458 (Version 1)
Quarter: 2017Q4

REPORT INFORMATION
  Report Type: Report from Study
  Country: DE (occurrence: DE)
  Receive Date: 20171109
  Receipt Date: 20171109
  Transmission Date: 20180321
  Serious: Yes (Death, Hospitalization)
  Sender: FDA-Public Use
  Company Number: DE-ROCHE-2022075

PATIENT
  Age: 70 Year
  Sex: Male
  Weight: 90 kg

DRUGS (19)
  1. HCTZ [Concomitant]
     Active Substance: HYDROCHLOROTHIAZIDE
     Route: 048
     Dates: end: 20100322
  2. MCP [Concomitant]
     Active Substance: METOCLOPRAMIDE HYDROCHLORIDE
     Indication: NAUSEA
     Route: 048
     Dates: end: 20100322
  3. CAPECITABINE. [Suspect]
     Active Substance: CAPECITABINE
     Indication: RECTAL CANCER
     Route: 048
  4. METOPROLOL. [Concomitant]
     Active Substance: METOPROLOL
     Indication: HYPERTENSION
     Route: 048
     Dates: start: 20081110, end: 20100322
  5. BEVACIZUMAB. [Suspect]
     Active Substance: BEVACIZUMAB
     Indication: RECTAL CANCER
     Route: 042
     Dates: start: 20080714, end: 20081020
  6. SPIRONOLACTONE. [Concomitant]
     Active Substance: SPIRONOLACTONE
     Route: 048
     Dates: end: 20100322
  7. FOLINIC ACID [Concomitant]
     Active Substance: LEUCOVORIN
  8. IRINOTECAN [Concomitant]
     Active Substance: IRINOTECAN
  9. OXALIPLATIN. [Concomitant]
     Active Substance: OXALIPLATIN
  10. NITRENDIPIN [Concomitant]
     Active Substance: NITRENDIPINE
     Indication: CARDIAC DISORDER
     Route: 048
     Dates: end: 20100322
  11. DELIX (GERMANY) [Concomitant]
     Indication: HYPERTENSION
     Route: 048
     Dates: end: 20100322
  12. FUROSEMIDE. [Concomitant]
     Active Substance: FUROSEMIDE
     Route: 048
     Dates: end: 20100322
  13. SEVREDOL [Concomitant]
     Active Substance: MORPHINE
     Indication: PAIN
     Route: 048
  14. MONICOR [Concomitant]
     Active Substance: ISOSORBIDE MONONITRATE
     Indication: CONSTIPATION
     Route: 048
     Dates: end: 20100322
  15. DELIX (GERMANY) [Concomitant]
     Indication: CARDIAC DISORDER
  16. IBUPROFEN. [Concomitant]
     Active Substance: IBUPROFEN
     Indication: PAIN
     Route: 048
     Dates: end: 20100322
  17. LOPERAMIDE [Concomitant]
     Active Substance: LOPERAMIDE
     Indication: DIARRHOEA
     Route: 065
     Dates: end: 20100322
  18. FLUOROURACIL. [Concomitant]
     Active Substance: FLUOROURACIL
  19. ALLOPURINOL. [Concomitant]
     Active Substance: ALLOPURINOL
     Route: 048
     Dates: end: 20100322

REACTIONS (4)
  - Pulmonary embolism [Fatal]
  - Prerenal failure [Fatal]
  - Arthralgia [Unknown]
  - Urosepsis [Recovered/Resolved]

NARRATIVE: CASE EVENT DATE: 20090124
